FAERS Safety Report 9242451 (Version 1)
Quarter: 2013Q2

REPORT INFORMATION
  Report Type: Spontaneous
  Country: CA (occurrence: CA)
  Receive Date: 20130419
  Receipt Date: 20130419
  Transmission Date: 20140414
  Serious: Yes (Hospitalization, Other)
  Sender: FDA-Public Use
  Company Number: CA-PFIZER INC-2013119291

PATIENT
  Age: 71 Year
  Sex: Female

DRUGS (4)
  1. CELEBREX [Suspect]
     Dosage: 200 MG, 1X/DAY
     Dates: start: 2004, end: 2012
  2. ISOPTIN - SLOW RELEASE [Concomitant]
     Dosage: 120 MG, 1X/DAY
     Dates: start: 2008
  3. ASAPHEN [Concomitant]
     Dosage: 80 MG, 1X/DAY
     Dates: start: 2008
  4. VERAPAMIL - SLOW RELEASE [Concomitant]
     Dosage: 180 MG, UNK
     Dates: start: 20070613, end: 20080626

REACTIONS (3)
  - Ischaemic stroke [Unknown]
  - Syncope [Unknown]
  - Arrhythmia [Unknown]
